FAERS Safety Report 18507261 (Version 2)
Quarter: 2020Q4

REPORT INFORMATION
  Report Type: Spontaneous
  Country: ES (occurrence: ES)
  Receive Date: 20201116
  Receipt Date: 20201127
  Transmission Date: 20210114
  Serious: Yes (Hospitalization, Other)
  Sender: FDA-Public Use
  Company Number: ES-TAKEDA-2020TUS050430

PATIENT
  Age: 72 Year
  Sex: Male

DRUGS (4)
  1. OBIZUR [Suspect]
     Active Substance: ANTIHEMOPHILIC FACTOR PORCINE, B-DOMAIN TRUNCATED RECOMBINANT
     Indication: HAEMARTHROSIS
  2. OBIZUR [Suspect]
     Active Substance: ANTIHEMOPHILIC FACTOR PORCINE, B-DOMAIN TRUNCATED RECOMBINANT
     Indication: HAEMARTHROSIS
  3. OBIZUR [Suspect]
     Active Substance: ANTIHEMOPHILIC FACTOR PORCINE, B-DOMAIN TRUNCATED RECOMBINANT
     Indication: PSOAS SIGN
     Dosage: UNK UNK, QD
     Route: 065
  4. OBIZUR [Suspect]
     Active Substance: ANTIHEMOPHILIC FACTOR PORCINE, B-DOMAIN TRUNCATED RECOMBINANT
     Indication: PSOAS SIGN
     Dosage: UNK UNK, QD
     Route: 065

REACTIONS (6)
  - Factor VIII deficiency [Unknown]
  - Hypercoagulation [Unknown]
  - COVID-19 [Unknown]
  - Hospitalisation [Unknown]
  - Fibrin D dimer increased [Unknown]
  - Pneumonia [Unknown]
